FAERS Safety Report 7387444-3 (Version None)
Quarter: 2011Q1

REPORT INFORMATION
  Report Type: 
  Country: None (occurrence: None)
  Receive Date: 20110331
  Receipt Date: 20110322
  Transmission Date: 20110831
  Serious: Yes (Other)
  Sender: FDA-Public Use
  Company Number: US-ELI_LILLY_AND_COMPANY-US201103007079

PATIENT
  Age: 42 Year
  Sex: Male

DRUGS (3)
  1. HUMALOG [Suspect]
     Indication: DIABETES MELLITUS
  2. HUMAN GROWTH HORMONE [Concomitant]
     Dosage: UNK
  3. HUMULIN N [Suspect]
     Indication: DIABETES MELLITUS

REACTIONS (1)
  - CORONARY ARTERY OCCLUSION [None]
